FAERS Safety Report 18381398 (Version 1)
Quarter: 2020Q4

REPORT INFORMATION
  Report Type: Spontaneous
  Country: US (occurrence: US)
  Receive Date: 20201014
  Receipt Date: 20201014
  Transmission Date: 20210114
  Serious: No
  Sender: FDA-Public Use
  Company Number: US-ASTRAZENECA-2020SF20954

PATIENT
  Sex: Female

DRUGS (9)
  1. TRICOR [Concomitant]
     Active Substance: FENOFIBRATE
  2. CRESTOR [Suspect]
     Active Substance: ROSUVASTATIN CALCIUM
     Route: 048
  3. PLAQUENIL [Concomitant]
     Active Substance: HYDROXYCHLOROQUINE SULFATE
  4. ZETIA [Concomitant]
     Active Substance: EZETIMIBE
  5. ALTOCOR [Concomitant]
     Active Substance: LOVASTATIN
  6. NIASPAN [Concomitant]
     Active Substance: NIACIN
  7. PRAVACHOL [Concomitant]
     Active Substance: PRAVASTATIN SODIUM
  8. LIPITOR [Concomitant]
     Active Substance: ATORVASTATIN CALCIUM
  9. LYRICA [Concomitant]
     Active Substance: PREGABALIN

REACTIONS (1)
  - Skin lesion [Unknown]
